FAERS Safety Report 7151806-X (Version None)
Quarter: 2010Q4

REPORT INFORMATION
  Report Type: 
  Country: None (occurrence: None)
  Receive Date: 20101210
  Receipt Date: 20101126
  Transmission Date: 20110411
  Serious: Yes (Life-Threatening, Hospitalization)
  Sender: FDA-Public Use
  Company Number: DK-AMGEN-DNKSP2010007495

PATIENT

DRUGS (2)
  1. ENBREL [Suspect]
     Dosage: 50 MILLIGRAM(S)
     Route: 058
     Dates: start: 20081010
  2. METHOTREXATE [Concomitant]
     Indication: PSORIASIS
     Route: 048
     Dates: start: 20081010

REACTIONS (1)
  - CEREBRAL INFARCTION [None]
